FAERS Safety Report 7234567-5 (Version None)
Quarter: 2011Q1

REPORT INFORMATION
  Report Type: 
  Country: None (occurrence: None)
  Receive Date: 20110120
  Receipt Date: 20110113
  Transmission Date: 20110831
  Serious: Yes (Other)
  Sender: FDA-Public Use
  Company Number: US-ASTRAZENECA-2007UW06445

PATIENT
  Age: 44 Year
  Sex: Female

DRUGS (10)
  1. ALBUTEROL [Concomitant]
     Dosage: 17 GM
     Dates: start: 20050908
  2. RISPERDAL [Concomitant]
     Dates: start: 19971201, end: 19980901
  3. TRAZODONE [Concomitant]
     Dates: start: 20010201
  4. NEURONTIN [Concomitant]
     Dates: start: 20010201
  5. DEPO-PROVERA [Concomitant]
     Dates: start: 20010201
  6. SEROQUEL [Suspect]
     Route: 048
     Dates: start: 20051013
  7. WELLBUTRIN [Concomitant]
     Dates: start: 19981201, end: 19990401
  8. REMERON [Concomitant]
     Dates: start: 20010201
  9. SEROQUEL [Suspect]
     Indication: SLEEP DISORDER
     Dosage: 25 MG, 100 MG
     Route: 048
     Dates: start: 19990129, end: 20021001
  10. ZOLOFT [Concomitant]
     Dates: start: 20050301

REACTIONS (7)
  - RENAL FAILURE [None]
  - TYPE 2 DIABETES MELLITUS [None]
  - HYPERLIPIDAEMIA [None]
  - OBESITY [None]
  - CYST [None]
  - HYPERTENSION [None]
  - BLOOD CHOLESTEROL INCREASED [None]
